FAERS Safety Report 23988163 (Version 3)
Quarter: 2024Q4

REPORT INFORMATION
  Report Type: Spontaneous
  Country: US (occurrence: US)
  Receive Date: 20240619
  Receipt Date: 20241009
  Transmission Date: 20250114
  Serious: Yes (Hospitalization, Other)
  Sender: BLUEPRINT MEDICINES
  Company Number: US-Blueprint Medicines Corporation-3912

PATIENT
  Age: 93 Year
  Sex: Male
  Weight: 74.4 kg

DRUGS (3)
  1. AYVAKIT [Suspect]
     Active Substance: AVAPRITINIB
     Indication: Advanced systemic mastocytosis
     Route: 048
     Dates: start: 20240220
  2. AYVAKIT [Suspect]
     Active Substance: AVAPRITINIB
     Indication: Hepatocellular carcinoma
     Route: 065
     Dates: start: 20240220
  3. AYVAKIT [Suspect]
     Active Substance: AVAPRITINIB
     Route: 048
     Dates: start: 20240627, end: 20240925

REACTIONS (1)
  - Cardiac failure [Unknown]
